FAERS Safety Report 7001300-1 (Version None)
Quarter: 2010Q3

REPORT INFORMATION
  Report Type: 
  Country: None (occurrence: None)
  Receive Date: 20100920
  Receipt Date: 20100323
  Transmission Date: 20110219
  Serious: No
  Sender: FDA-Public Use
  Company Number: US-ASTRAZENECA-2010SE13050

PATIENT
  Sex: Female

DRUGS (3)
  1. SEROQUEL [Suspect]
     Route: 048
  2. AMITRIPTYLINE HCL [Concomitant]
  3. BENEFAXIN [Concomitant]

REACTIONS (5)
  - DRUG DOSE OMISSION [None]
  - HEADACHE [None]
  - HYPERSOMNIA [None]
  - SOMNOLENCE [None]
  - TREMOR [None]
